FAERS Safety Report 9447979 (Version 1)
Quarter: 2013Q3

REPORT INFORMATION
  Report Type: Spontaneous
  Country: CA (occurrence: None)
  Receive Date: 20130806
  Receipt Date: 20130806
  Transmission Date: 20140515
  Serious: Yes (Other)
  Sender: FDA-Public Use
  Company Number: 2013P1013699

PATIENT
  Age: 77 Year
  Sex: Male

DRUGS (12)
  1. FUROSEMIDE [Suspect]
     Indication: RIGHT VENTRICULAR FAILURE
     Route: 042
  2. DILTIAZEM [Suspect]
  3. REVATIO [Suspect]
     Indication: PULMONARY HYPERTENSION
     Route: 048
  4. ASPIRIN [Concomitant]
  5. CLOPIDOGREL [Concomitant]
  6. ATORVASTATIN [Concomitant]
  7. FLUTICASONE [Concomitant]
  8. SALMETEROL [Concomitant]
  9. TIOTROPIUM [Concomitant]
  10. ACETYLCYSTEINE [Concomitant]
  11. DOMPERIDONE [Concomitant]
  12. VITAMINB12 [Concomitant]

REACTIONS (5)
  - Drug interaction [None]
  - Pulmonary hypertension [None]
  - Right ventricular failure [None]
  - Deafness [None]
  - Ototoxicity [None]
